FAERS Safety Report 24202512 (Version 1)
Quarter: 2024Q3

REPORT INFORMATION
  Report Type: Spontaneous
  Country: RU (occurrence: RU)
  Receive Date: 20240813
  Receipt Date: 20240813
  Transmission Date: 20241017
  Serious: Yes (Other)
  Sender: ORGANON
  Company Number: RU-ORGANON-O2408RUS000681

PATIENT
  Age: 93 Year
  Sex: Female

DRUGS (1)
  1. DIPROSPAN [Suspect]
     Active Substance: BETAMETHASONE DIPROPIONATE\BETAMETHASONE SODIUM PHOSPHATE
     Indication: Plantar fasciitis
     Dosage: UNK UNK, ONCE A MONTH
     Route: 030
     Dates: start: 2023

REACTIONS (4)
  - Blood pressure increased [Unknown]
  - Drug effective for unapproved indication [Unknown]
  - Prescription drug used without a prescription [Unknown]
  - Product use in unapproved indication [Unknown]

NARRATIVE: CASE EVENT DATE: 20230101
